FAERS Safety Report 18000550 (Version 1)
Quarter: 2020Q3

REPORT INFORMATION
  Report Type: Spontaneous
  Country: IT (occurrence: IT)
  Receive Date: 20200709
  Receipt Date: 20200709
  Transmission Date: 20201103
  Serious: Yes (Hospitalization)
  Sender: FDA-Public Use
  Company Number: IT-NEOS THERAPEUTICS, LP-2020NEO00034

PATIENT
  Age: 6 Year
  Sex: Male

DRUGS (1)
  1. CHLORPHENAMINE AND ACETAMINOPHEN [Suspect]
     Active Substance: ACETAMINOPHEN\CHLORPHENIRAMINE MALEATE
     Indication: UPPER RESPIRATORY TRACT INFECTION
     Dosage: UNK UNK, 1X/DAY
     Route: 048

REACTIONS (1)
  - Electrocardiogram QT prolonged [Unknown]
